FAERS Safety Report 13565096 (Version 1)
Quarter: 2017Q2

REPORT INFORMATION
  Report Type: Spontaneous
  Country: US (occurrence: US)
  Receive Date: 20170519
  Receipt Date: 20170519
  Transmission Date: 20170830
  Serious: No
  Sender: FDA-Public Use
  Company Number: US-BAUSCH-BL-2017-007525

PATIENT
  Age: 71 Year
  Sex: Female
  Weight: 113.5 kg

DRUGS (3)
  1. IPRATROPIUM BROMIDE NASAL SOLUTION 0.03% [Suspect]
     Active Substance: IPRATROPIUM BROMIDE
     Dosage: USING THE PRODUCT 2 TO 3 TIMES DAILY
     Route: 045
     Dates: start: 201703
  2. IPRATROPIUM BROMIDE NASAL SOLUTION 0.03% [Suspect]
     Active Substance: IPRATROPIUM BROMIDE
     Indication: RHINORRHOEA
     Dosage: 1 SPRAY IN EACH NOSTRIL ONCE DAILY
     Route: 045
  3. IPRATROPIUM BROMIDE NASAL SOLUTION 0.03% [Suspect]
     Active Substance: IPRATROPIUM BROMIDE
     Dosage: IF SHE FELT THE RETURN OF THE RUNNY NOSE SYMPTOMS DURING THE DAY, SHE MAY USE AN ADDITIONAL SPRAY IN
     Route: 045

REACTIONS (1)
  - Drug ineffective [Unknown]
